FAERS Safety Report 6225489-7 (Version None)
Quarter: 2009Q2

REPORT INFORMATION
  Report Type: 
  Country: None (occurrence: None)
  Receive Date: 20090612
  Receipt Date: 20090421
  Transmission Date: 20091009
  Serious: No
  Sender: FDA-Public Use
  Company Number: US-ABBOTT-09P-163-0569346-00

PATIENT
  Sex: Female
  Weight: 90.8 kg

DRUGS (3)
  1. HUMIRA [Suspect]
     Indication: PSORIASIS
     Route: 058
     Dates: start: 20090101
  2. DIOVAN [Concomitant]
     Indication: HYPERTENSION
     Dosage: AS NEEDED
  3. AMBIEN [Concomitant]
     Indication: INSOMNIA
     Dosage: AS NEEDED

REACTIONS (3)
  - NASAL CONGESTION [None]
  - PSORIASIS [None]
  - SINUS CONGESTION [None]
